FAERS Safety Report 25719251 (Version 2)
Quarter: 2025Q3

REPORT INFORMATION
  Report Type: Spontaneous
  Country: US (occurrence: US)
  Receive Date: 20250824
  Receipt Date: 20250901
  Transmission Date: 20251020
  Serious: Yes (Hospitalization)
  Sender: AUROBINDO
  Company Number: US-AUROBINDO-AUR-APL-2025-042996

PATIENT
  Age: 54 Year
  Sex: Male

DRUGS (8)
  1. DOXYCYCLINE [Suspect]
     Active Substance: DOXYCYCLINE
     Indication: Abscess
     Dosage: 100 MILLIGRAM, TWO TIMES A DAY
     Route: 048
  2. DOXYCYCLINE [Suspect]
     Active Substance: DOXYCYCLINE
     Indication: Ulcer
  3. CEPHALEXIN [Suspect]
     Active Substance: CEPHALEXIN
     Indication: Abscess
     Dosage: 500 MILLIGRAM, TWO TIMES A DAY
     Route: 048
  4. CEPHALEXIN [Suspect]
     Active Substance: CEPHALEXIN
     Indication: Ulcer
  5. VANCOMYCIN [Suspect]
     Active Substance: VANCOMYCIN
     Indication: Evidence based treatment
     Dosage: 1.5 GRAM, TWO TIMES A DAY
     Route: 042
  6. VANCOMYCIN [Suspect]
     Active Substance: VANCOMYCIN
     Indication: Cellulitis
  7. CEFTRIAXONE [Concomitant]
     Active Substance: CEFTRIAXONE
     Indication: Cellulitis
     Route: 042
  8. ITRACONAZOLE [Concomitant]
     Active Substance: ITRACONAZOLE
     Indication: Cellulitis
     Route: 048

REACTIONS (2)
  - Treatment failure [Unknown]
  - Infusion site rash [Unknown]
